FAERS Safety Report 12240578 (Version 1)
Quarter: 2016Q2

REPORT INFORMATION
  Report Type: Spontaneous
  Country: US (occurrence: US)
  Receive Date: 20160405
  Receipt Date: 20160405
  Transmission Date: 20160815
  Serious: No
  Sender: FDA-Public Use
  Company Number: US-AMGEN-USASP2016042289

PATIENT
  Age: 68 Year
  Sex: Female

DRUGS (19)
  1. LOSARTAN. [Concomitant]
     Active Substance: LOSARTAN
     Route: 065
  2. DUREZOL [Concomitant]
     Active Substance: DIFLUPREDNATE
     Route: 065
  3. VIRTUSSIN AC [Concomitant]
     Active Substance: CODEINE PHOSPHATE\GUAIFENESIN
     Route: 065
  4. PREDNISONE. [Concomitant]
     Active Substance: PREDNISONE
     Route: 065
  5. BENZONATATE. [Concomitant]
     Active Substance: BENZONATATE
     Route: 065
  6. OMEGA 3                            /01333901/ [Concomitant]
     Active Substance: FISH OIL\TOCOPHEROL
     Route: 065
  7. ZETIA [Concomitant]
     Active Substance: EZETIMIBE
     Route: 065
  8. ILEVRO [Concomitant]
     Active Substance: NEPAFENAC
     Route: 065
  9. LANSOPRAZOLE. [Concomitant]
     Active Substance: LANSOPRAZOLE
     Route: 065
  10. AMLODIPINE [Concomitant]
     Active Substance: AMLODIPINE BESYLATE
     Route: 065
  11. NYSTATIN. [Concomitant]
     Active Substance: NYSTATIN
     Route: 065
  12. VITAMIN D2 [Concomitant]
     Active Substance: ERGOCALCIFEROL
     Route: 065
  13. ENBREL [Suspect]
     Active Substance: ETANERCEPT
     Indication: RHEUMATOID ARTHRITIS
     Dosage: 50 MG, QWK
     Route: 058
     Dates: start: 20151021
  14. BUTALBITAL [Concomitant]
     Active Substance: BUTALBITAL
     Route: 065
  15. DICLOFENAC SODIUM. [Concomitant]
     Active Substance: DICLOFENAC SODIUM
     Route: 065
  16. OMEPRAZOLE. [Concomitant]
     Active Substance: OMEPRAZOLE
     Route: 065
  17. MONTELUKAST [Concomitant]
     Active Substance: MONTELUKAST SODIUM
     Route: 065
  18. OFLOXACIN. [Concomitant]
     Active Substance: OFLOXACIN
     Route: 065
  19. AZELASTINE [Concomitant]
     Active Substance: AZELASTINE
     Route: 065

REACTIONS (1)
  - Fungal infection [Not Recovered/Not Resolved]

NARRATIVE: CASE EVENT DATE: 20151022
